FAERS Safety Report 6857569-7 (Version None)
Quarter: 2010Q3

REPORT INFORMATION
  Report Type: 
  Country: None (occurrence: None)
  Receive Date: 20100719
  Receipt Date: 20080124
  Transmission Date: 20110219
  Serious: No
  Sender: FDA-Public Use
  Company Number: US-PFIZER INC-2008009114

PATIENT
  Sex: Female

DRUGS (3)
  1. CHANTIX [Suspect]
     Indication: SMOKING CESSATION THERAPY
     Route: 048
     Dates: start: 20080115
  2. TYLENOL [Concomitant]
     Indication: HYPERTENSION
  3. HERBAL NOS/MINERALS NOS [Concomitant]

REACTIONS (5)
  - ABNORMAL DREAMS [None]
  - DRUG DOSE OMISSION [None]
  - NAUSEA [None]
  - NIGHTMARE [None]
  - VOMITING IN PREGNANCY [None]
